FAERS Safety Report 7420633-8 (Version None)
Quarter: 2011Q2

REPORT INFORMATION
  Report Type: 
  Country: None (occurrence: None)
  Receive Date: 20110418
  Receipt Date: 20110408
  Transmission Date: 20111010
  Serious: Yes (Hospitalization)
  Sender: FDA-Public Use
  Company Number: FR-BAXTER-2011BH010808

PATIENT
  Age: 37 Year
  Sex: Female

DRUGS (10)
  1. NORVIR [Suspect]
     Indication: PRODUCT USED FOR UNKNOWN INDICATION
     Route: 048
  2. EMTRICITABINE [Concomitant]
     Indication: PRODUCT USED FOR UNKNOWN INDICATION
     Route: 065
  3. TENOFOVIR DISOPROXIL FUMARATE [Concomitant]
     Indication: PRODUCT USED FOR UNKNOWN INDICATION
     Route: 065
  4. TAXOTERE [Suspect]
     Indication: BREAST CANCER
     Route: 042
     Dates: start: 20110211, end: 20110211
  5. ZOPHREN [Concomitant]
     Indication: PREMEDICATION
     Route: 065
     Dates: start: 20110211, end: 20110211
  6. METHYLPREDNISOLONE [Concomitant]
     Indication: PREMEDICATION
     Route: 065
     Dates: start: 20110211, end: 20110211
  7. CYCLOPHOSPHAMIDE [Suspect]
     Indication: BREAST CANCER
     Route: 042
     Dates: start: 20110114, end: 20110114
  8. CYCLOPHOSPHAMIDE [Suspect]
     Route: 042
     Dates: start: 20110211, end: 20110211
  9. TAXOTERE [Suspect]
     Route: 042
     Dates: start: 20110114, end: 20110114
  10. ATAZANAVIR [Concomitant]
     Indication: PRODUCT USED FOR UNKNOWN INDICATION
     Route: 065

REACTIONS (4)
  - MUCOSAL INFLAMMATION [None]
  - DYSPHAGIA [None]
  - DIARRHOEA [None]
  - SKIN TOXICITY [None]
